FAERS Safety Report 9000873 (Version 1)
Quarter: 2013Q1

REPORT INFORMATION
  Report Type: Spontaneous
  Country: US (occurrence: None)
  Receive Date: 20130103
  Receipt Date: 20130103
  Transmission Date: 20140127
  Serious: Yes (Life-Threatening, Hospitalization)
  Sender: FDA-Public Use
  Company Number: None

PATIENT
  Age: 86 Year
  Sex: Male
  Weight: 69.4 kg

DRUGS (2)
  1. ALPRAZOLAM [Suspect]
     Indication: ANXIETY
     Dosage: 1/2 TO 1 TABLET 3 TIMES A DAY PO
     Dates: start: 20120711, end: 20121003
  2. ALPRAZOLAM [Suspect]
     Indication: ANXIETY
     Dosage: 1/2 TO 1 TABLET 3 TIMES A DAY PO
     Dates: start: 20121003, end: 20121108

REACTIONS (42)
  - Fatigue [None]
  - Dyspnoea [None]
  - Hyperventilation [None]
  - Pain [None]
  - Withdrawal syndrome [None]
  - Dyspnoea [None]
  - Insomnia [None]
  - Disturbance in attention [None]
  - Fatigue [None]
  - Dizziness [None]
  - Headache [None]
  - Tinnitus [None]
  - Eye pain [None]
  - Fear [None]
  - Fear of death [None]
  - Depression [None]
  - Anxiety [None]
  - Rash [None]
  - Restlessness [None]
  - Feeling cold [None]
  - Fear of disease [None]
  - Dyspepsia [None]
  - Salivary hypersecretion [None]
  - Drooling [None]
  - Sinus disorder [None]
  - Vertigo [None]
  - Pruritus generalised [None]
  - Homicidal ideation [None]
  - Thirst [None]
  - Constipation [None]
  - Tremor [None]
  - Myalgia [None]
  - Arthralgia [None]
  - Restless legs syndrome [None]
  - Hyperhidrosis [None]
  - Dysgeusia [None]
  - Bruxism [None]
  - Suicidal ideation [None]
  - Influenza like illness [None]
  - Coordination abnormal [None]
  - Phobia [None]
  - Clumsiness [None]
